FAERS Safety Report 6888292-0 (Version None)
Quarter: 2010Q3

REPORT INFORMATION
  Report Type: 
  Country: None (occurrence: None)
  Receive Date: 20100730
  Receipt Date: 20100720
  Transmission Date: 20110219
  Serious: Yes (Other)
  Sender: FDA-Public Use
  Company Number: US-JNJFOC-20100706956

PATIENT
  Age: 12 Year
  Sex: Female

DRUGS (8)
  1. INFLIXIMAB, RECOMBINANT [Suspect]
     Indication: RETINAL DETACHMENT
     Route: 042
  2. INFLIXIMAB, RECOMBINANT [Suspect]
     Route: 042
  3. INFLIXIMAB, RECOMBINANT [Suspect]
     Route: 042
  4. INFLIXIMAB, RECOMBINANT [Suspect]
     Route: 042
  5. INFLIXIMAB, RECOMBINANT [Suspect]
     Route: 042
  6. PREDNISONE [Concomitant]
  7. METHOTREXATE [Concomitant]
     Route: 048
  8. TRIAMCINOLONE [Concomitant]
     Route: 050

REACTIONS (2)
  - DRUG INEFFECTIVE FOR UNAPPROVED INDICATION [None]
  - RETINAL OEDEMA [None]
